FAERS Safety Report 13667630 (Version 3)
Quarter: 2017Q4

REPORT INFORMATION
  Report Type: Report from Study
  Country: None (occurrence: CL)
  Receive Date: 20170620
  Receipt Date: 20171124
  Transmission Date: 20180320
  Serious: Yes (Other)
  Sender: FDA-Public Use
  Company Number: CL-ABBVIE-17K-034-2011059-00

PATIENT
  Age: 65 Year
  Sex: Female

DRUGS (10)
  1. HUMIRA [Suspect]
     Active Substance: ADALIMUMAB
     Indication: RHEUMATOID ARTHRITIS
     Route: 058
     Dates: start: 20170314
  2. HYDROXYCHLOROQUINE [Concomitant]
     Active Substance: HYDROXYCHLOROQUINE
     Indication: PRODUCT USED FOR UNKNOWN INDICATION
  3. METHOTREXATE. [Suspect]
     Active Substance: METHOTREXATE
     Dosage: DOSE DECREASED
     Route: 065
  4. PREDNISONE. [Concomitant]
     Active Substance: PREDNISONE
     Indication: PRODUCT USED FOR UNKNOWN INDICATION
  5. METHOTREXATE. [Suspect]
     Active Substance: METHOTREXATE
     Indication: PRODUCT USED FOR UNKNOWN INDICATION
     Route: 065
  6. PREGABALIN. [Suspect]
     Active Substance: PREGABALIN
     Dosage: HALF OF PREVIOUS DOSE
     Route: 065
     Dates: start: 20170704
  7. FOLIC ACID. [Concomitant]
     Active Substance: FOLIC ACID
     Indication: PRODUCT USED FOR UNKNOWN INDICATION
  8. DICLOFENAC [Concomitant]
     Active Substance: DICLOFENAC
     Indication: PRODUCT USED FOR UNKNOWN INDICATION
  9. PREGABALIN. [Suspect]
     Active Substance: PREGABALIN
     Indication: PRODUCT USED FOR UNKNOWN INDICATION
     Route: 065
     Dates: start: 20170703, end: 20170704
  10. PARACETAMOL [Concomitant]
     Active Substance: ACETAMINOPHEN
     Indication: PRODUCT USED FOR UNKNOWN INDICATION

REACTIONS (10)
  - Malaise [Unknown]
  - Suicidal ideation [Unknown]
  - Drug effect incomplete [Recovering/Resolving]
  - Peripheral swelling [Not Recovered/Not Resolved]
  - Arthralgia [Unknown]
  - Depression [Unknown]
  - Dizziness [Recovered/Resolved]
  - Feeling abnormal [Recovered/Resolved]
  - Fall [Recovered/Resolved]
  - Nausea [Not Recovered/Not Resolved]

NARRATIVE: CASE EVENT DATE: 2017
